FAERS Safety Report 9575780 (Version 1)
Quarter: 2013Q4

REPORT INFORMATION
  Report Type: Spontaneous
  Country: US (occurrence: US)
  Receive Date: 20131001
  Receipt Date: 20131001
  Transmission Date: 20140711
  Serious: No
  Sender: FDA-Public Use
  Company Number: US-AMGEN-USASP2012069046

PATIENT
  Sex: Female

DRUGS (2)
  1. PROCRIT [Suspect]
     Indication: PRODUCT USED FOR UNKNOWN INDICATION
     Dosage: 60000 IU, 3 TIMES/WK
     Route: 058
  2. INTERFERON [Concomitant]
     Dosage: UNK
     Dates: start: 1996

REACTIONS (5)
  - Psoriasis [Unknown]
  - Hypoacusis [Not Recovered/Not Resolved]
  - Walking aid user [Not Recovered/Not Resolved]
  - Renal disorder [Not Recovered/Not Resolved]
  - Platelet count abnormal [Not Recovered/Not Resolved]
